FAERS Safety Report 8273381-9 (Version None)
Quarter: 2012Q2

REPORT INFORMATION
  Report Type: 
  Country: None (occurrence: None)
  Receive Date: 20120411
  Receipt Date: 20120405
  Transmission Date: 20120825
  Serious: Yes (Other)
  Sender: FDA-Public Use
  Company Number: PHHY2012JP025566

PATIENT
  Age: 59 Year
  Sex: Female
  Weight: 52 kg

DRUGS (9)
  1. DEXAMETHASONE SODIUM PHOSPHATE [Concomitant]
  2. ZOMETA [Suspect]
     Dosage: UNK UKN, UNK
  3. ZOMETA [Suspect]
     Indication: METASTASES TO BONE
     Dosage: 4 MG, PER ADMINISTRATION
     Route: 041
     Dates: start: 20100930, end: 20111226
  4. ZOMETA [Suspect]
     Dosage: 4 MG, PER ADMINISTRATION
     Route: 041
     Dates: start: 20120218, end: 20120227
  5. CYCLOPHOSPHAMIDE [Concomitant]
     Dosage: UNK
     Route: 041
  6. TAXOTERE [Concomitant]
     Dosage: UNK
     Route: 041
     Dates: end: 20120227
  7. TAXOTERE [Concomitant]
     Dosage: UNK UKN, UNK
  8. CYCLOPHOSPHAMIDE [Concomitant]
     Dosage: UNK UKN, UNK
  9. ALOXI [Concomitant]

REACTIONS (4)
  - SENSORY DISTURBANCE [None]
  - EXPOSED BONE IN JAW [None]
  - OSTEONECROSIS OF JAW [None]
  - GINGIVAL ATROPHY [None]
